FAERS Safety Report 6823773-7 (Version None)
Quarter: 2010Q3

REPORT INFORMATION
  Report Type: 
  Country: None (occurrence: None)
  Receive Date: 20100708
  Receipt Date: 20070111
  Transmission Date: 20110219
  Serious: No
  Sender: FDA-Public Use
  Company Number: US-PFIZER INC-2006105374

PATIENT
  Sex: Female
  Weight: 64.86 kg

DRUGS (4)
  1. CHANTIX [Suspect]
     Indication: SMOKING CESSATION THERAPY
     Dates: start: 20060821
  2. ESTROVEN [Concomitant]
  3. ACETYLSALICYLIC ACID [Concomitant]
  4. MONTELUKAST [Concomitant]
     Indication: MULTIPLE ALLERGIES
     Dates: end: 20060821

REACTIONS (2)
  - ARTHRALGIA [None]
  - MYALGIA [None]
